FAERS Safety Report 23437519 (Version 1)
Quarter: 2024Q1

REPORT INFORMATION
  Report Type: Report from Study
  Country: CN (occurrence: CN)
  Receive Date: 20240124
  Receipt Date: 20240124
  Transmission Date: 20240410
  Serious: Yes (Other)
  Sender: FDA-Public Use
  Company Number: CN-SUN PHARMACEUTICAL INDUSTRIES LTD-2024R1-427711

PATIENT
  Age: 32 Year
  Sex: Male

DRUGS (5)
  1. CAFFEINE [Suspect]
     Active Substance: CAFFEINE
     Indication: Product used for unknown indication
     Dosage: UNK
     Route: 065
  2. EPHEDRINE [Suspect]
     Active Substance: EPHEDRINE
     Indication: Product used for unknown indication
     Dosage: UNK
     Route: 065
  3. PHENDIMETRAZINE TARTRATE [Suspect]
     Active Substance: PHENDIMETRAZINE TARTRATE
     Indication: Product used for unknown indication
     Dosage: UNK
     Route: 065
  4. ORTHOSIPHON ARISTATUS LEAF [Suspect]
     Active Substance: ORTHOSIPHON ARISTATUS LEAF
     Indication: Product used for unknown indication
     Dosage: UNK
     Route: 065
  5. LEVOCARNITINE [Suspect]
     Active Substance: LEVOCARNITINE
     Indication: Product used for unknown indication
     Dosage: UNK
     Route: 065

REACTIONS (3)
  - Choroidal effusion [Unknown]
  - Myopia [Unknown]
  - Ocular hypertension [Unknown]
